FAERS Safety Report 6663474-1 (Version None)
Quarter: 2010Q1

REPORT INFORMATION
  Report Type: 
  Country: None (occurrence: None)
  Receive Date: 20100330
  Receipt Date: 20100330
  Transmission Date: 20100710
  Serious: No
  Sender: FDA-Public Use
  Company Number: None

PATIENT
  Age: 74 Year
  Sex: Male
  Weight: 92.0802 kg

DRUGS (2)
  1. LOVASTATIN [Suspect]
  2. SIMVASTATIN [Suspect]

REACTIONS (3)
  - MUSCLE SPASMS [None]
  - PAIN [None]
  - PAIN IN EXTREMITY [None]
